FAERS Safety Report 17490504 (Version 1)
Quarter: 2020Q1

REPORT INFORMATION
  Report Type: Spontaneous
  Country: US (occurrence: US)
  Receive Date: 20200303
  Receipt Date: 20200303
  Transmission Date: 20200409
  Serious: No
  Sender: FDA-Public Use
  Company Number: US-AKORN PHARMACEUTICALS-2019AKN01143

PATIENT
  Age: 20 Year
  Sex: Female

DRUGS (1)
  1. MYORISAN [Suspect]
     Active Substance: ISOTRETINOIN
     Dosage: 60 MG, 1X/DAY ^AVERAGE DAILY DOSE^
     Dates: start: 20181015, end: 20181113

REACTIONS (3)
  - Abortion induced [Recovered/Resolved]
  - Product dispensing error [Recovered/Resolved]
  - Drug exposure before pregnancy [Recovered/Resolved]

NARRATIVE: CASE EVENT DATE: 20190509
